FAERS Safety Report 9580114 (Version 1)
Quarter: 2013Q4

REPORT INFORMATION
  Report Type: Other
  Country: GB (occurrence: GB)
  Receive Date: 20131002
  Receipt Date: 20131002
  Transmission Date: 20140711
  Serious: Yes (Disabling, Other)
  Sender: FDA-Public Use
  Company Number: GB-TARO PHARMACEUTICALS U.S.A., INC-2013SUN04761

PATIENT
  Age: 55 Year
  Sex: Male
  Weight: 115 kg

DRUGS (2)
  1. WARFARIN [Suspect]
     Indication: DEEP VEIN THROMBOSIS
     Dosage: AS NECESSARY
     Route: 048
     Dates: start: 2006, end: 20130820
  2. WARFARIN [Suspect]
     Indication: PULMONARY EMBOLISM

REACTIONS (2)
  - Neuropathy peripheral [Recovered/Resolved with Sequelae]
  - Ulcer [Unknown]
